FAERS Safety Report 9391815 (Version 1)
Quarter: 2013Q3

REPORT INFORMATION
  Report Type: Spontaneous
  Country: US (occurrence: US)
  Receive Date: 20130709
  Receipt Date: 20130709
  Transmission Date: 20140515
  Serious: Yes (Life-Threatening, Other)
  Sender: FDA-Public Use
  Company Number: US-ASTRAZENECA-2013SE51162

PATIENT
  Sex: Female

DRUGS (7)
  1. SEROQUEL [Suspect]
     Route: 048
  2. ZOLOFT [Suspect]
  3. LEXAPRO [Suspect]
  4. PAXIL [Suspect]
  5. ABILIFY [Suspect]
  6. EFFEXOR [Suspect]
  7. LAMICTAL [Suspect]

REACTIONS (2)
  - Suicide attempt [Unknown]
  - Adverse drug reaction [Unknown]
